FAERS Safety Report 4932556-4 (Version None)
Quarter: 2006Q1

REPORT INFORMATION
  Report Type: 
  Country: None (occurrence: None)
  Receive Date: 20060301
  Receipt Date: 20060217
  Transmission Date: 20060701
  Serious: Yes (Other)
  Sender: FDA-Public Use
  Company Number: 2006025351

PATIENT
  Age: 76 Year
  Sex: Male

DRUGS (3)
  1. VFEND [Suspect]
     Indication: ASPERGILLOMA
     Dosage: 400 MG, (200 MG, 2 IN 1 D) ORAL
     Route: 048
     Dates: start: 20060207, end: 20060210
  2. LIPITOR [Concomitant]
  3. ALL OTHER THERAPEUTIC PRODUCTS [Concomitant]

REACTIONS (1)
  - RHABDOMYOLYSIS [None]
